FAERS Safety Report 22137127 (Version 1)
Quarter: 2023Q1

REPORT INFORMATION
  Report Type: Spontaneous
  Country: US (occurrence: US)
  Receive Date: 20230324
  Receipt Date: 20230324
  Transmission Date: 20230418
  Serious: No
  Sender: FDA-Public Use
  Company Number: US-AMYLYX PHARMACEUTICALS, INC-AMX-001659

PATIENT
  Sex: Male

DRUGS (5)
  1. RELYVRIO [Suspect]
     Active Substance: SODIUM PHENYLBUTYRATE\TAURURSODIOL
     Indication: Amyotrophic lateral sclerosis
     Dosage: 1 SACHET ONCE DAILY FOR 3 WEEKS, THEN 1 SACHET TWICE DAILY
     Route: 048
  2. RADICAVA [Concomitant]
     Active Substance: EDARAVONE
     Indication: Product used for unknown indication
     Dosage: UNK
  3. RILUZOLE [Concomitant]
     Active Substance: RILUZOLE
     Indication: Product used for unknown indication
     Dosage: UNK
  4. VALIUM [Concomitant]
     Active Substance: DIAZEPAM
     Indication: Product used for unknown indication
     Dosage: UNK
  5. BACLOFEN [Concomitant]
     Active Substance: BACLOFEN
     Indication: Product used for unknown indication
     Dosage: UNK

REACTIONS (3)
  - Psychiatric symptom [Unknown]
  - Mental status changes [Unknown]
  - Depressed mood [Unknown]
